FAERS Safety Report 4275141-2 (Version None)
Quarter: 2004Q1

REPORT INFORMATION
  Report Type: 
  Country: None (occurrence: None)
  Receive Date: 20040116
  Receipt Date: 20040108
  Transmission Date: 20041129
  Serious: Yes (Hospitalization)
  Sender: FDA-Public Use
  Company Number: 2004194150FR

PATIENT
  Age: 4 Year
  Sex: Female

DRUGS (22)
  1. ALDACTONE [Suspect]
     Dosage: 30 MG, ORAL
     Route: 048
     Dates: start: 20031113, end: 20031209
  2. LASIX [Suspect]
     Dosage: 100 MG 6 TIMES DAILY, IV
     Route: 042
     Dates: start: 20031028, end: 20031030
  3. GENTAMICIN [Suspect]
     Dosage: IV
     Route: 042
     Dates: start: 20031029, end: 20031030
  4. MORPHINE HYDROCHLORIDE (MORPHINE HYDROCHLORIDE) [Suspect]
     Dosage: IV
     Route: 042
     Dates: start: 20031028, end: 20031031
  5. VANCOCIN HCL [Suspect]
     Dosage: IV
     Route: 042
     Dates: start: 20031029, end: 20031105
  6. PARACETAMOL (PARACETAMOL) [Suspect]
     Dosage: 100 MG SIX TIMES DAILY, IV
     Route: 042
     Dates: start: 20031028, end: 20031030
  7. NUBAIN [Suspect]
  8. DIGOXIN [Suspect]
  9. ACETAMINOPHEN [Suspect]
     Dosage: ORAL
     Route: 048
  10. CODEINE (CODEINE) [Suspect]
     Dosage: IV
     Route: 042
  11. KAYEXALATE [Suspect]
  12. ROCEPHIN [Suspect]
  13. CLAFORAN [Suspect]
  14. NORCURON [Suspect]
  15. OMEPRAZOLE [Suspect]
  16. COROTROPE [Suspect]
  17. EPINEPHRINE [Suspect]
  18. FENTANYL [Suspect]
  19. NARCOZEP (FLUNITRAZEPAM) [Suspect]
  20. ASPEGIC 1000 [Suspect]
  21. UN-ALFA (ALFACALCIDOL) [Suspect]
  22. CALCIDIA (CALCIUM CARBONATE) [Suspect]

REACTIONS (1)
  - PANCYTOPENIA [None]
